FAERS Safety Report 9566198 (Version 1)
Quarter: 2013Q3

REPORT INFORMATION
  Report Type: Spontaneous
  Country: US (occurrence: US)
  Receive Date: 20130930
  Receipt Date: 20130930
  Transmission Date: 20140515
  Serious: No
  Sender: FDA-Public Use
  Company Number: US-ASTRAZENECA-2013SE64522

PATIENT
  Sex: Female

DRUGS (9)
  1. ATENOLOL [Suspect]
     Route: 048
  2. BRILINTA [Suspect]
     Route: 048
     Dates: start: 201305
  3. LIPITOR [Concomitant]
     Dosage: NOT REPORTED
  4. HOROMONE [Concomitant]
     Dosage: NOT REPORTED
  5. ESTRADIOL [Concomitant]
     Dosage: NOT REPORTED
  6. PROMETRIUM [Concomitant]
     Dosage: NOT REPORTED
  7. ADVIL [Concomitant]
     Dosage: NOT REPORTED
  8. MUCINEX D [Concomitant]
     Dosage: NOT REPORTED
  9. VITAMINS [Concomitant]
     Dosage: NOT REPORTED

REACTIONS (4)
  - Nasopharyngitis [Unknown]
  - Hypersensitivity [Unknown]
  - Sneezing [Unknown]
  - Seasonal allergy [Unknown]
